FAERS Safety Report 7800167-9 (Version None)
Quarter: 2011Q4

REPORT INFORMATION
  Report Type: 
  Country: None (occurrence: None)
  Receive Date: 20111006
  Receipt Date: 20110930
  Transmission Date: 20120403
  Serious: Yes (Hospitalization, Other)
  Sender: FDA-Public Use
  Company Number: US-MERCK-1109USA02136

PATIENT
  Age: 61 Year
  Sex: Female

DRUGS (3)
  1. ALENDRONATE SODIUM [Suspect]
     Indication: OSTEOPOROSIS
     Route: 065
     Dates: start: 20090201, end: 20110501
  2. FOSAMAX PLUS D [Suspect]
     Indication: OSTEOPOROSIS
     Route: 048
  3. FOSAMAX [Suspect]
     Indication: OSTEOPOROSIS
     Route: 048
     Dates: start: 19990201, end: 20110501

REACTIONS (9)
  - UTERINE CANCER [None]
  - PANCYTOPENIA [None]
  - FEMUR FRACTURE [None]
  - PAIN IN EXTREMITY [None]
  - BLOOD CHOLESTEROL ABNORMAL [None]
  - SLEEP DISORDER [None]
  - INTESTINAL OBSTRUCTION [None]
  - TOOTH DISORDER [None]
  - THYROID DISORDER [None]
